FAERS Safety Report 10237053 (Version 2)
Quarter: 2014Q3

REPORT INFORMATION
  Report Type: Spontaneous
  Country: JP (occurrence: JP)
  Receive Date: 20140613
  Receipt Date: 20140717
  Transmission Date: 20150326
  Serious: Yes (Hospitalization, Other)
  Sender: FDA-Public Use
  Company Number: JP-BRISTOL-MYERS SQUIBB COMPANY-20985826

PATIENT
  Age: 64 Year
  Sex: Female
  Weight: 92.1 kg

DRUGS (8)
  1. ORENCIA [Suspect]
     Active Substance: ABATACEPT
     Indication: RHEUMATOID ARTHRITIS
     Route: 042
     Dates: start: 20140312, end: 20140508
  2. GLYCYRON [Concomitant]
     Active Substance: AMMONIUM GLYCYRRHIZATE\GLYCINE\METHIONINE
  3. PARIET [Concomitant]
     Active Substance: RABEPRAZOLE SODIUM
  4. URSO [Concomitant]
     Active Substance: URSODIOL
  5. RHEUMATREX [Suspect]
     Active Substance: METHOTREXATE SODIUM
     Dates: start: 20041128, end: 20140508
  6. VOLTAREN [Concomitant]
     Active Substance: DICLOFENAC SODIUM
  7. FOLIAMIN [Concomitant]
     Active Substance: FOLIC ACID
  8. ACTOS [Concomitant]
     Active Substance: PIOGLITAZONE HYDROCHLORIDE

REACTIONS (1)
  - Interstitial lung disease [Recovered/Resolved]

NARRATIVE: CASE EVENT DATE: 20140605
